FAERS Safety Report 17020351 (Version 1)
Quarter: 2019Q4

REPORT INFORMATION
  Report Type: Spontaneous
  Country: JP (occurrence: JP)
  Receive Date: 20191112
  Receipt Date: 20191112
  Transmission Date: 20200122
  Serious: Yes (Hospitalization)
  Sender: FDA-Public Use
  Company Number: JP-BAXTER-2019BAX022587

PATIENT
  Age: 72 Year
  Sex: Female

DRUGS (9)
  1. UROMITEXAN 400 MG [Suspect]
     Active Substance: MESNA
     Indication: PRODUCT USED FOR UNKNOWN INDICATION
     Dosage: FOR OVER 16 HOURS
     Route: 041
     Dates: start: 20191023, end: 20191023
  2. ADRIACIN [Suspect]
     Active Substance: DOXORUBICIN HYDROCHLORIDE
     Indication: DEDIFFERENTIATED LIPOSARCOMA
     Dosage: FIRST AND SECOND COURSE OF AI THERAPY
     Route: 041
  3. ORGADRONE [Suspect]
     Active Substance: DEXAMETHASONE SODIUM PHOSPHATE
     Indication: PRODUCT USED FOR UNKNOWN INDICATION
     Route: 065
     Dates: start: 20191023, end: 20191023
  4. HOLOXAN [Suspect]
     Active Substance: IFOSFAMIDE
     Indication: DEDIFFERENTIATED LIPOSARCOMA
     Dosage: FIRST AND SECOND COURSE OF AI THERAPY
     Route: 041
  5. ADRIACIN [Suspect]
     Active Substance: DOXORUBICIN HYDROCHLORIDE
     Dosage: THIRD COURSE OF AI THERAPY
     Route: 041
     Dates: start: 20191023, end: 20191023
  6. EMEND [Suspect]
     Active Substance: APREPITANT
     Indication: PROPHYLAXIS OF NAUSEA AND VOMITING
     Route: 048
     Dates: start: 20191023, end: 20191023
  7. GRANISETRON HYDROCHLORIDE. [Suspect]
     Active Substance: GRANISETRON HYDROCHLORIDE
     Indication: PRODUCT USED FOR UNKNOWN INDICATION
     Route: 065
     Dates: start: 20191023, end: 20191023
  8. HOLOXAN [Suspect]
     Active Substance: IFOSFAMIDE
     Dosage: THIRD COURSE OF AI THERAPY
     Route: 041
     Dates: start: 20191023, end: 20191023
  9. EMEND [Suspect]
     Active Substance: APREPITANT
     Route: 048
     Dates: start: 20191024, end: 20191025

REACTIONS (1)
  - Cystitis haemorrhagic [Recovered/Resolved]

NARRATIVE: CASE EVENT DATE: 20191023
